FAERS Safety Report 8023762-3 (Version None)
Quarter: 2012Q1

REPORT INFORMATION
  Report Type: 
  Country: None (occurrence: None)
  Receive Date: 20120105
  Receipt Date: 20111228
  Transmission Date: 20120608
  Serious: Yes (Other)
  Sender: FDA-Public Use
  Company Number: GB-ELI_LILLY_AND_COMPANY-GB201112007435

PATIENT
  Age: 42 Year
  Sex: Male

DRUGS (1)
  1. FLUOXETINE HCL [Suspect]
     Dosage: 20 MG, UNK
     Dates: start: 20111017, end: 20111101

REACTIONS (3)
  - NERVOUSNESS [None]
  - MENTAL IMPAIRMENT [None]
  - FEELING DRUNK [None]
